FAERS Safety Report 20420850 (Version 1)
Quarter: 2022Q1

REPORT INFORMATION
  Report Type: Spontaneous
  Country: US (occurrence: None)
  Receive Date: 20220203
  Receipt Date: 20220203
  Transmission Date: 20220423
  Serious: Yes (Hospitalization)
  Sender: FDA-Public Use
  Company Number: None

PATIENT
  Age: 18 Year
  Sex: Male
  Weight: 115 kg

DRUGS (6)
  1. CYCLOPHOSPHAMIDE [Suspect]
     Active Substance: CYCLOPHOSPHAMIDE
     Dates: end: 20211231
  2. DOXORUBICIN HYDROCHLORIDE [Suspect]
     Active Substance: DOXORUBICIN HYDROCHLORIDE
     Dates: end: 20211231
  3. ETOPOSIDE [Suspect]
     Active Substance: ETOPOSIDE
     Dates: end: 20211231
  4. PREDNISONE [Suspect]
     Active Substance: PREDNISONE
     Dates: end: 20211231
  5. RITUXIMAB [Suspect]
     Active Substance: RITUXIMAB
     Dates: end: 20211227
  6. VINCRISTINE SULFATE [Suspect]
     Active Substance: VINCRISTINE SULFATE
     Dates: end: 20211231

REACTIONS (4)
  - COVID-19 pneumonia [None]
  - Pneumonia [None]
  - Pneumonia [None]
  - Febrile neutropenia [None]

NARRATIVE: CASE EVENT DATE: 20220114
